FAERS Safety Report 18334735 (Version 1)
Quarter: 2020Q4

REPORT INFORMATION
  Report Type: Spontaneous
  Country: US (occurrence: US)
  Receive Date: 20201001
  Receipt Date: 20201001
  Transmission Date: 20210113
  Serious: Yes (Life-Threatening, Hospitalization)
  Sender: FDA-Public Use
  Company Number: US-MYLANLABS-2020M1083015

PATIENT
  Age: 38 Year
  Sex: Female

DRUGS (4)
  1. MEROPENEM. [Concomitant]
     Active Substance: MEROPENEM
     Indication: EVIDENCE BASED TREATMENT
     Dosage: 1 GRAM, Q8H
     Route: 042
  2. PREDNISONE. [Suspect]
     Active Substance: PREDNISONE
     Indication: DRUG THERAPY
     Dosage: 40 MILLIGRAM, QD, FOR 2 WEEKS LATER SLOWLY TAPERED
     Route: 048
  3. MESALAMINE. [Concomitant]
     Active Substance: MESALAMINE
     Indication: DRUG THERAPY
     Dosage: 1 GRAM, QID
     Route: 065
  4. VANCOMYCIN [Concomitant]
     Active Substance: VANCOMYCIN
     Indication: EVIDENCE BASED TREATMENT
     Dosage: 1 GRAM, BID
     Route: 042

REACTIONS (12)
  - Septic shock [Recovered/Resolved]
  - Pleural effusion [Recovered/Resolved]
  - Pneumoperitoneum [Recovered/Resolved]
  - Cachexia [Recovered/Resolved]
  - Peritonitis [Recovered/Resolved]
  - Malnutrition [Recovered/Resolved]
  - Disease progression [Recovered/Resolved]
  - Tachycardia [Recovered/Resolved]
  - Renal abscess [Recovered/Resolved]
  - Histoplasmosis disseminated [Recovered/Resolved]
  - Acute respiratory failure [Recovered/Resolved]
  - Ascites [Recovered/Resolved]
